FAERS Safety Report 6329974-9 (Version None)
Quarter: 2009Q3

REPORT INFORMATION
  Report Type: 
  Country: None (occurrence: None)
  Receive Date: 20090825
  Receipt Date: 20090811
  Transmission Date: 20100115
  Serious: Yes (Death, Hospitalization, Other)
  Sender: FDA-Public Use
  Company Number: 001065

PATIENT
  Age: 69 Year
  Sex: Female

DRUGS (11)
  1. DEPONIT [Suspect]
     Indication: ANGINA PECTORIS
     Dosage: (SUBLINGUAL)
     Route: 060
  2. DICLOFENAC (DICLOFENAC) [Suspect]
     Indication: ARTHRALGIA
     Dosage: 2 TABLETS ORAL
     Route: 048
     Dates: start: 20090511
  3. PARACETAMOL [Concomitant]
  4. RAMIPRIL [Concomitant]
  5. SALBUTAMOL [Concomitant]
  6. AMLODIPINE [Concomitant]
  7. ASPIRIN [Concomitant]
  8. ATORVASTATIN [Concomitant]
  9. BUMETANIDE [Concomitant]
  10. LANSOPRAZOLE [Concomitant]
  11. SERETIDE /01420901/ [Concomitant]

REACTIONS (8)
  - ABDOMINAL PAIN [None]
  - ANAPHYLACTIC REACTION [None]
  - CARDIAC ARREST [None]
  - CARDIO-RESPIRATORY ARREST [None]
  - COLITIS ISCHAEMIC [None]
  - DIARRHOEA [None]
  - INTESTINAL INFARCTION [None]
  - SELF-MEDICATION [None]
